FAERS Safety Report 8460058-X (Version None)
Quarter: 2012Q2

REPORT INFORMATION
  Report Type: 
  Country: None (occurrence: None)
  Receive Date: 20120622
  Receipt Date: 20120614
  Transmission Date: 20120825
  Serious: Yes (Hospitalization, Other)
  Sender: FDA-Public Use
  Company Number: PR-ABBOTT-12P-131-0934032-00

PATIENT
  Sex: Male
  Weight: 54.48 kg

DRUGS (1)
  1. HUMIRA [Suspect]
     Indication: CROHN'S DISEASE
     Route: 058
     Dates: start: 20120502, end: 20120530

REACTIONS (4)
  - VIRAL INFECTION [None]
  - VOMITING [None]
  - ABDOMINAL PAIN [None]
  - INTESTINAL OBSTRUCTION [None]
